FAERS Safety Report 17519807 (Version 1)
Quarter: 2020Q1

REPORT INFORMATION
  Report Type: Spontaneous
  Country: US (occurrence: US)
  Receive Date: 20200226
  Receipt Date: 20200226
  Transmission Date: 20200409
  Serious: Yes (Hospitalization)
  Sender: FDA-Public Use
  Company Number: None

PATIENT
  Age: 67 Year
  Sex: Female
  Weight: 84 kg

DRUGS (2)
  1. GEMCITABINE HYDROCHLORIDE. [Suspect]
     Active Substance: GEMCITABINE HYDROCHLORIDE
     Dates: end: 20200212
  2. CISPLATIN. [Suspect]
     Active Substance: CISPLATIN
     Dates: end: 20200205

REACTIONS (3)
  - Tachycardia [None]
  - Platelet count decreased [None]
  - Pulmonary embolism [None]

NARRATIVE: CASE EVENT DATE: 20200218
